FAERS Safety Report 6974206-1 (Version None)
Quarter: 2010Q3

REPORT INFORMATION
  Report Type: 
  Country: None (occurrence: None)
  Receive Date: 20100909
  Receipt Date: 20080318
  Transmission Date: 20110219
  Serious: Yes (Disabling, Other)
  Sender: FDA-Public Use
  Company Number: US-WYE-H01147007

PATIENT
  Sex: Female
  Weight: 59.93 kg

DRUGS (6)
  1. PROTONIX [Suspect]
     Indication: GASTRIC ULCER
     Route: 048
     Dates: start: 20070702, end: 20070101
  2. PROTONIX [Suspect]
     Route: 048
     Dates: start: 20070101, end: 20070801
  3. MULTI-VITAMINS [Concomitant]
     Dosage: UNKNOWN
  4. VICODIN [Concomitant]
     Indication: ARTHRALGIA
     Route: 065
     Dates: start: 20070730
  5. ZANTAC [Concomitant]
     Indication: GASTROOESOPHAGEAL REFLUX DISEASE
  6. CARAFATE [Concomitant]
     Indication: GASTROOESOPHAGEAL REFLUX DISEASE
     Route: 065
     Dates: start: 20070701, end: 20070824

REACTIONS (1)
  - THROMBOCYTOPENIA [None]
